FAERS Safety Report 6216668-3 (Version None)
Quarter: 2009Q2

REPORT INFORMATION
  Report Type: 
  Country: None (occurrence: None)
  Receive Date: 20090605
  Receipt Date: 20090529
  Transmission Date: 20091009
  Serious: Yes (Other)
  Sender: FDA-Public Use
  Company Number: AU-JNJFOC-20090507075

PATIENT
  Sex: Male
  Weight: 81 kg

DRUGS (50)
  1. GOLIMUMAB [Suspect]
     Route: 058
  2. GOLIMUMAB [Suspect]
     Route: 058
  3. GOLIMUMAB [Suspect]
     Route: 058
  4. GOLIMUMAB [Suspect]
     Route: 058
  5. GOLIMUMAB [Suspect]
     Route: 058
  6. GOLIMUMAB [Suspect]
     Route: 058
  7. GOLIMUMAB [Suspect]
     Route: 058
  8. GOLIMUMAB [Suspect]
     Route: 058
  9. GOLIMUMAB [Suspect]
     Route: 058
  10. GOLIMUMAB [Suspect]
     Route: 058
  11. GOLIMUMAB [Suspect]
     Route: 058
  12. GOLIMUMAB [Suspect]
     Route: 058
  13. GOLIMUMAB [Suspect]
     Route: 058
  14. GOLIMUMAB [Suspect]
     Route: 058
  15. GOLIMUMAB [Suspect]
     Route: 058
  16. GOLIMUMAB [Suspect]
     Route: 058
  17. GOLIMUMAB [Suspect]
     Route: 058
  18. GOLIMUMAB [Suspect]
     Route: 058
  19. GOLIMUMAB [Suspect]
     Route: 058
  20. GOLIMUMAB [Suspect]
     Route: 058
  21. GOLIMUMAB [Suspect]
     Route: 058
  22. GOLIMUMAB [Suspect]
     Route: 058
  23. GOLIMUMAB [Suspect]
     Route: 058
  24. GOLIMUMAB [Suspect]
     Route: 058
  25. GOLIMUMAB [Suspect]
     Route: 058
  26. GOLIMUMAB [Suspect]
     Route: 058
  27. GOLIMUMAB [Suspect]
     Route: 058
  28. GOLIMUMAB [Suspect]
     Route: 058
  29. GOLIMUMAB [Suspect]
     Route: 058
  30. GOLIMUMAB [Suspect]
     Route: 058
  31. GOLIMUMAB [Suspect]
     Route: 058
  32. GOLIMUMAB [Suspect]
     Route: 058
  33. GOLIMUMAB [Suspect]
     Route: 058
  34. GOLIMUMAB [Suspect]
     Route: 058
  35. GOLIMUMAB [Suspect]
     Route: 058
  36. GOLIMUMAB [Suspect]
     Route: 058
  37. GOLIMUMAB [Suspect]
     Indication: RHEUMATOID ARTHRITIS
     Route: 058
  38. METHOTREXATE [Suspect]
     Route: 048
  39. METHOTREXATE [Suspect]
     Route: 048
  40. METHOTREXATE [Suspect]
     Route: 048
  41. METHOTREXATE [Suspect]
     Route: 048
  42. METHOTREXATE [Suspect]
     Route: 048
  43. METHOTREXATE [Suspect]
     Indication: RHEUMATOID ARTHRITIS
     Route: 048
  44. ACETAMINOPHEN AND CODEINE PHOSPHATE [Concomitant]
     Route: 048
  45. METHOTREXATE [Concomitant]
     Route: 048
  46. CANDESARTAN [Concomitant]
     Route: 048
  47. ZANIDIP [Concomitant]
     Route: 048
  48. LIPITOR [Concomitant]
     Route: 048
  49. ASPIRIN [Concomitant]
     Route: 048
  50. SOLUBLE ASPIRIN (ACETYLSALICYLIC ACID) [Concomitant]
     Route: 048

REACTIONS (2)
  - MALIGNANT NEOPLASM OF CORNEA [None]
  - SQUAMOUS CELL CARCINOMA [None]
